FAERS Safety Report 7161749-3 (Version None)
Quarter: 2010Q4

REPORT INFORMATION
  Report Type: 
  Country: None (occurrence: None)
  Receive Date: 20101201
  Receipt Date: 20101115
  Transmission Date: 20110411
  Serious: Yes (Life-Threatening)
  Sender: FDA-Public Use
  Company Number: 2010005010

PATIENT
  Age: 75 Year
  Sex: Male

DRUGS (5)
  1. TARCEVA [Suspect]
     Indication: NON-SMALL CELL LUNG CANCER
     Dosage: (150 MG), ORAL
     Route: 048
     Dates: start: 20100601, end: 20101029
  2. SINTROM [Concomitant]
  3. GLICLAZIDE (GLICLAZIDE) [Concomitant]
  4. LOSAZID (HYZAAR) [Concomitant]
  5. DELTA-CORTEF [Concomitant]

REACTIONS (2)
  - INTERSTITIAL LUNG DISEASE [None]
  - RESPIRATORY FAILURE [None]
